FAERS Safety Report 4921046-0 (Version None)
Quarter: 2006Q1

REPORT INFORMATION
  Report Type: 
  Country: None (occurrence: None)
  Receive Date: 20060223
  Receipt Date: 20051031
  Transmission Date: 20060701
  Serious: Yes (Hospitalization)
  Sender: FDA-Public Use
  Company Number: US-MERCK-0511USA00143

PATIENT
  Age: 39 Year
  Sex: Male
  Weight: 108 kg

DRUGS (3)
  1. VIOXX [Suspect]
     Indication: ARTHRITIS
     Route: 048
     Dates: start: 20030101, end: 20030901
  2. WELLBUTRIN [Concomitant]
     Indication: EX-SMOKER
     Route: 065
  3. CATAPRES [Concomitant]
     Indication: BLOOD PRESSURE
     Route: 065

REACTIONS (11)
  - ANXIETY [None]
  - BLOOD CHOLESTEROL INCREASED [None]
  - CARDIAC MURMUR [None]
  - CHOLELITHIASIS [None]
  - CORONARY ARTERY DISEASE [None]
  - DYSPNOEA [None]
  - MYOCARDIAL INFARCTION [None]
  - OEDEMA PERIPHERAL [None]
  - PANIC DISORDER [None]
  - RIB FRACTURE [None]
  - SLEEP APNOEA SYNDROME [None]
